FAERS Safety Report 18744697 (Version 5)
Quarter: 2021Q2

REPORT INFORMATION
  Report Type: Report from Study
  Country: US (occurrence: US)
  Receive Date: 20210115
  Receipt Date: 20210601
  Transmission Date: 20210717
  Serious: Yes (Hospitalization)
  Sender: FDA-Public Use
  Company Number: US-B.I. PHARMACEUTICALS,INC./RIDGEFIELD-2020-BI-068139

PATIENT
  Age: 80 Year
  Sex: Male

DRUGS (1)
  1. OFEV [Suspect]
     Active Substance: NINTEDANIB
     Indication: INTERSTITIAL LUNG DISEASE
     Dosage: 150MG BID
     Route: 048
     Dates: start: 20201028, end: 20210426

REACTIONS (9)
  - Condition aggravated [Unknown]
  - Gastrointestinal pain [Recovered/Resolved with Sequelae]
  - Haemorrhoidal haemorrhage [Unknown]
  - Abdominal pain upper [Unknown]
  - Flatulence [Unknown]
  - Diarrhoea [Recovered/Resolved]
  - Decreased interest [Unknown]
  - Weight decreased [Not Recovered/Not Resolved]
  - Dizziness [Not Recovered/Not Resolved]
